FAERS Safety Report 5101129-5 (Version None)
Quarter: 2006Q3

REPORT INFORMATION
  Report Type: 
  Country: None (occurrence: None)
  Receive Date: 20060906
  Receipt Date: 20060829
  Transmission Date: 20061208
  Serious: Yes (Other)
  Sender: FDA-Public Use
  Company Number: 2006104508

PATIENT
  Age: 82 Year
  Sex: Male

DRUGS (1)
  1. XALATAN [Suspect]
     Indication: DRUG USE FOR UNKNOWN INDICATION
     Dosage: INTRAOCULAR
     Route: 031

REACTIONS (4)
  - DRUG HYPERSENSITIVITY [None]
  - HYPERSENSITIVITY [None]
  - OCULAR HYPERAEMIA [None]
  - VISION BLURRED [None]
